APPROVED DRUG PRODUCT: QUINAPRIL HYDROCHLORIDE
Active Ingredient: QUINAPRIL HYDROCHLORIDE
Strength: EQ 40MG BASE
Dosage Form/Route: TABLET;ORAL
Application: A205823 | Product #004 | TE Code: AB
Applicant: PRINSTON PHARMACEUTICAL INC
Approved: Sep 15, 2016 | RLD: No | RS: No | Type: RX